FAERS Safety Report 7388739-X (Version None)
Quarter: 2011Q1

REPORT INFORMATION
  Report Type: 
  Country: None (occurrence: None)
  Receive Date: 20110329
  Receipt Date: 20110329
  Transmission Date: 20110831
  Serious: No
  Sender: FDA-Public Use
  Company Number: None

PATIENT
  Age: 30 Year
  Sex: Male

DRUGS (2)
  1. SALINE [Suspect]
     Dosage: 5ML FLUSH
  2. VENOFER [Suspect]
     Dosage: 200MG/ 10ML
     Dates: start: 20110128

REACTIONS (1)
  - INFUSION SITE EXTRAVASATION [None]
